FAERS Safety Report 5703108-3 (Version None)
Quarter: 2008Q2

REPORT INFORMATION
  Report Type: 
  Country: None (occurrence: None)
  Receive Date: 20080411
  Receipt Date: 20080331
  Transmission Date: 20081010
  Serious: Yes (Other)
  Sender: FDA-Public Use
  Company Number: FR-ROCHE-554577

PATIENT
  Age: 49 Year
  Sex: Female
  Weight: 55 kg

DRUGS (2)
  1. TAMIFLU [Suspect]
     Indication: INFLUENZA
     Dosage: DOSAGE REGIMEN 2 DOSES DAILY
     Route: 048
     Dates: start: 20080220, end: 20080223
  2. DOLIPRANE [Concomitant]
     Dates: start: 20080220, end: 20080225

REACTIONS (1)
  - CONVULSION [None]
